FAERS Safety Report 9636524 (Version 1)
Quarter: 2013Q4

REPORT INFORMATION
  Report Type: Spontaneous
  Country: US (occurrence: None)
  Receive Date: 20131017
  Receipt Date: 20131017
  Transmission Date: 20140711
  Serious: Yes (Hospitalization)
  Sender: FDA-Public Use
  Company Number: 2009S1007614

PATIENT
  Age: 67 Year
  Sex: Male
  Weight: 115.35 kg

DRUGS (18)
  1. FLEET PHOSPHO-SODA [Suspect]
     Indication: COLONOSCOPY
     Dosage: 90ML, 2 IN 24 HOURS, ORAL
     Route: 048
     Dates: start: 20041206, end: 20041207
  2. DULCOLAX (BISACODYL) [Suspect]
     Dosage: 2 IN 24 HOURS, ORAL
     Route: 048
     Dates: start: 20041206, end: 20041206
  3. PRIMAXIN [Suspect]
     Indication: DIVERTICULITIS
  4. NORTRIPTYLINE [Concomitant]
  5. ATENOLOL [Concomitant]
  6. NEURONTIN [Concomitant]
  7. ASPIRIN [Concomitant]
  8. ZOCOR [Concomitant]
  9. PRILOSEC [Concomitant]
  10. NITROGLYCERIN [Concomitant]
  11. ENALAPRIL MALEATE [Concomitant]
  12. LOPID [Concomitant]
  13. PLAVIX [Concomitant]
  14. ALDACTONE [Concomitant]
  15. TYLENOL (PARACETAMOL) [Concomitant]
  16. STOOL SOFTENER (DOCUSATE SODIUM) [Concomitant]
  17. NITROSTAT [Concomitant]
  18. FLU VACCINE [Concomitant]

REACTIONS (8)
  - Cholelithiasis [None]
  - Renal cyst [None]
  - Hiatus hernia [None]
  - Diverticulitis [None]
  - Diverticular perforation [None]
  - Renal failure acute [None]
  - Hypotension [None]
  - Dehydration [None]
